FAERS Safety Report 4755886-8 (Version None)
Quarter: 2005Q3

REPORT INFORMATION
  Report Type: 
  Country: None (occurrence: None)
  Receive Date: 20050830
  Receipt Date: 20050722
  Transmission Date: 20060218
  Serious: No
  Sender: FDA-Public Use
  Company Number: US-BRISTOL-MYERS SQUIBB COMPANY-13047071

PATIENT
  Age: 53 Year
  Sex: Male
  Weight: 107 kg

DRUGS (4)
  1. ERBITUX [Suspect]
     Indication: COLON CANCER
     Dosage: 550 MG WEEKLY THEREAFTER.
     Route: 042
  2. BENADRYL [Concomitant]
     Indication: PREMEDICATION
  3. KYTRIL [Concomitant]
     Indication: PREMEDICATION
  4. IRINOTECAN [Concomitant]

REACTIONS (2)
  - OEDEMA [None]
  - RASH [None]
